FAERS Safety Report 18850193 (Version 3)
Quarter: 2021Q2

REPORT INFORMATION
  Report Type: Spontaneous
  Country: JP (occurrence: JP)
  Receive Date: 20210204
  Receipt Date: 20210416
  Transmission Date: 20210717
  Serious: Yes (Hospitalization, Other)
  Sender: FDA-Public Use
  Company Number: JP-ASTRAZENECA-2021A024102

PATIENT
  Age: 72 Year
  Sex: Male
  Weight: 41 kg

DRUGS (7)
  1. REBAMIPIDE [Concomitant]
     Active Substance: REBAMIPIDE
     Indication: CHRONIC GASTRITIS
     Route: 048
     Dates: start: 20140401
  2. BAYASPIRIN [Concomitant]
     Active Substance: ASPIRIN
     Indication: CEREBRAL ARTERIOSCLEROSIS
     Route: 048
     Dates: start: 20151101, end: 20210105
  3. FLIVAS OD [Concomitant]
     Active Substance: NAFTOPIDIL
     Indication: BENIGN PROSTATIC HYPERPLASIA
     Route: 048
     Dates: start: 20140523, end: 20210105
  4. GASTER [Concomitant]
     Active Substance: FAMOTIDINE
     Indication: CHRONIC GASTRITIS
     Route: 048
     Dates: start: 20101105
  5. LOXONIN [Suspect]
     Active Substance: LOXOPROFEN SODIUM
     Indication: BACK PAIN
     Route: 048
     Dates: start: 20140201, end: 20210105
  6. CRESTOR [Suspect]
     Active Substance: ROSUVASTATIN CALCIUM
     Indication: HYPERLIPIDAEMIA
     Route: 048
     Dates: start: 20171113, end: 20210105
  7. GLYCYRON (AMINOACETIC ACID\DL?METHIONINE\GLYCYRRHIZIC ACID) [Suspect]
     Active Substance: AMMONIUM GLYCYRRHIZATE\GLYCINE\RACEMETHIONINE
     Indication: HEPATIC FUNCTION ABNORMAL
     Route: 048
     Dates: start: 20201109, end: 20210105

REACTIONS (3)
  - Pseudoaldosteronism [Recovered/Resolved]
  - Rhabdomyolysis [Recovered/Resolved]
  - Hepatic function abnormal [Recovered/Resolved]

NARRATIVE: CASE EVENT DATE: 20201109
